FAERS Safety Report 10472340 (Version 2)
Quarter: 2014Q3

REPORT INFORMATION
  Report Type: Spontaneous
  Country: MX (occurrence: MX)
  Receive Date: 20140924
  Receipt Date: 20140924
  Transmission Date: 20150326
  Serious: Yes (Disabling)
  Sender: FDA-Public Use
  Company Number: MX-ROCHE-1429303

PATIENT
  Age: 62 Year
  Sex: Female
  Weight: 66.5 kg

DRUGS (6)
  1. SILVER SULFADIAZINE CREAM [Concomitant]
     Indication: BASAL CELL CARCINOMA
     Dosage: FOR EAR AREA
     Route: 061
  2. CIPROFLOXACIN. [Concomitant]
     Active Substance: CIPROFLOXACIN
     Indication: PRODUCT USED FOR UNKNOWN INDICATION
     Route: 050
     Dates: start: 201409
  3. RETINOIC ACID [Concomitant]
     Active Substance: TRETINOIN
     Indication: BASAL CELL CARCINOMA
     Dosage: FOR FACE AT NIGHT
     Route: 061
  4. TRANSFER FACTOR [Concomitant]
     Indication: BASAL CELL CARCINOMA
     Route: 048
     Dates: start: 2013
  5. ERIVEDGE [Suspect]
     Active Substance: VISMODEGIB
     Indication: BASAL CELL CARCINOMA
     Route: 048
     Dates: start: 20140423
  6. CARBOXYMETHYLCELLULOSE [Concomitant]
     Active Substance: CARBOXYMETHYLCELLULOSE
     Route: 047

REACTIONS (26)
  - Eye irritation [Recovering/Resolving]
  - Ageusia [Not Recovered/Not Resolved]
  - Pain [Recovered/Resolved]
  - Muscle spasms [Not Recovered/Not Resolved]
  - Fatigue [Not Recovered/Not Resolved]
  - Blood cholesterol increased [Not Recovered/Not Resolved]
  - Tremor [Not Recovered/Not Resolved]
  - Hyperglycaemia [Not Recovered/Not Resolved]
  - Decreased appetite [Not Recovered/Not Resolved]
  - Eating disorder [Not Recovered/Not Resolved]
  - Headache [Recovered/Resolved]
  - Skin odour abnormal [Recovered/Resolved]
  - Pharyngitis [Recovering/Resolving]
  - Musculoskeletal stiffness [Recovering/Resolving]
  - Photophobia [Recovering/Resolving]
  - Alopecia [Not Recovered/Not Resolved]
  - Musculoskeletal pain [Recovered/Resolved]
  - Pulmonary pain [Recovered/Resolved]
  - Decreased immune responsiveness [Not Recovered/Not Resolved]
  - Hypoaesthesia [Recovering/Resolving]
  - Gait disturbance [Recovered/Resolved]
  - Burning sensation [Not Recovered/Not Resolved]
  - Nausea [Not Recovered/Not Resolved]
  - Constipation [Recovered/Resolved]
  - Arthralgia [Recovered/Resolved]
  - Dysgeusia [Not Recovered/Not Resolved]

NARRATIVE: CASE EVENT DATE: 20140423
